FAERS Safety Report 10458863 (Version 3)
Quarter: 2015Q2

REPORT INFORMATION
  Report Type: Spontaneous
  Country: US (occurrence: US)
  Receive Date: 20140917
  Receipt Date: 20150626
  Transmission Date: 20150821
  Serious: Yes (Hospitalization, Congenital Anomaly, Other)
  Sender: FDA-Public Use
  Company Number: US-UCBSA-2014011543

PATIENT
  Age: 0 Year
  Sex: Male
  Weight: 2.84 kg

DRUGS (4)
  1. KEPPRA XR [Suspect]
     Active Substance: LEVETIRACETAM
     Dosage: 3500 MG, ONCE DAILY (QD)
     Route: 064
     Dates: start: 2014, end: 20140727
  2. KEPPRA XR [Suspect]
     Active Substance: LEVETIRACETAM
     Indication: EPILEPSY
     Dosage: DAILY DOSE: 3000 MG
     Route: 064
     Dates: end: 2014
  3. KEPPRA XR [Suspect]
     Active Substance: LEVETIRACETAM
     Dosage: DAILY DOSE: 3000 MG
     Route: 063
     Dates: start: 2015
  4. KEPPRA XR [Suspect]
     Active Substance: LEVETIRACETAM
     Dosage: DAILY DOSE: 3500 MG
     Route: 063
     Dates: start: 2014, end: 2015

REACTIONS (7)
  - Hydrocephalus [Recovered/Resolved]
  - Cleft lip [Recovered/Resolved]
  - Hypoxia [Recovered/Resolved]
  - Kidney enlargement [Not Recovered/Not Resolved]
  - Foetal exposure during pregnancy [Unknown]
  - Exposure during breast feeding [Unknown]
  - Dyspnoea [Recovered/Resolved]

NARRATIVE: CASE EVENT DATE: 2014
